FAERS Safety Report 13386209 (Version 1)
Quarter: 2017Q1

REPORT INFORMATION
  Report Type: Spontaneous
  Country: US (occurrence: US)
  Receive Date: 20170330
  Receipt Date: 20170330
  Transmission Date: 20170429
  Serious: No
  Sender: FDA-Public Use
  Company Number: US-BAYER-2017-059515

PATIENT
  Sex: Male

DRUGS (5)
  1. CLARITIN [Suspect]
     Active Substance: LORATADINE
     Indication: RHINORRHOEA
  2. CLARITIN [Suspect]
     Active Substance: LORATADINE
     Indication: SNEEZING
  3. CLARITIN [Suspect]
     Active Substance: LORATADINE
     Indication: LACRIMATION INCREASED
  4. CLARITIN [Suspect]
     Active Substance: LORATADINE
     Indication: SEASONAL ALLERGY
     Dosage: TOOK TWO TABLETS AND HOUR 18 HE DID NEED ANOTHER DOSE
     Route: 065
  5. CLARITIN [Suspect]
     Active Substance: LORATADINE
     Indication: NASAL CONGESTION

REACTIONS (2)
  - Drug effect incomplete [Unknown]
  - Product use issue [Unknown]
